FAERS Safety Report 16908747 (Version 3)
Quarter: 2020Q1

REPORT INFORMATION
  Report Type: Report from Study
  Country: US (occurrence: US)
  Receive Date: 20191011
  Receipt Date: 20200114
  Transmission Date: 20200409
  Serious: Yes (Hospitalization, Other)
  Sender: FDA-Public Use
  Company Number: US-TAIHO ONCOLOGY  INC-EU-2019-03328

PATIENT
  Age: 49 Year
  Sex: Female
  Weight: 55 kg

DRUGS (9)
  1. REGLAN [Concomitant]
     Active Substance: METOCLOPRAMIDE HYDROCHLORIDE
     Indication: APPETITE DISORDER
     Route: 048
  2. SENNA [Concomitant]
     Active Substance: SENNA LEAF\SENNOSIDES\SENNOSIDES A AND B
     Indication: CONSTIPATION PROPHYLAXIS
     Route: 048
  3. METHADONE [Concomitant]
     Active Substance: METHADONE HYDROCHLORIDE
     Route: 048
  4. ONDANSETRON [Concomitant]
     Active Substance: ONDANSETRON
     Route: 048
  5. LOSARTAN/HCTZ [Concomitant]
     Active Substance: HYDROCHLOROTHIAZIDE\LOSARTAN
     Indication: HYPERTENSION
     Route: 048
  6. PAXIL [Concomitant]
     Active Substance: PAROXETINE HYDROCHLORIDE
     Route: 048
  7. ALEVE [Concomitant]
     Active Substance: NAPROXEN SODIUM
     Indication: PAIN
     Dosage: TAKEN WITH FOOD
     Route: 048
  8. MORPHINE SULFATE. [Concomitant]
     Active Substance: MORPHINE SULFATE
     Dosage: LIQUID, SOLUTION
     Route: 048
  9. LONSURF [Suspect]
     Active Substance: TIPIRACIL HYDROCHLORIDE\TRIFLURIDINE
     Indication: COLON CANCER METASTATIC
     Dosage: CURRENT CYCLE UNKNOWN.
     Route: 048
     Dates: start: 20190831

REACTIONS (27)
  - Memory impairment [Unknown]
  - Depression [Unknown]
  - Mesenteric artery stenosis [Unknown]
  - Pigmentation disorder [Unknown]
  - Asthenia [Unknown]
  - Haemoglobin decreased [Unknown]
  - Tumour pain [Not Recovered/Not Resolved]
  - Vomiting [Not Recovered/Not Resolved]
  - Atelectasis [Unknown]
  - Abdominal distension [Recovered/Resolved]
  - Pancreatitis acute [Not Recovered/Not Resolved]
  - Ascites [Not Recovered/Not Resolved]
  - Eructation [Unknown]
  - Vascular compression [Unknown]
  - Hypokalaemia [Recovered/Resolved]
  - Nausea [Not Recovered/Not Resolved]
  - Pancreatic duct obstruction [Unknown]
  - Cholelithiasis [Unknown]
  - Pleural effusion [Unknown]
  - Splenomegaly [Unknown]
  - Duodenal obstruction [Unknown]
  - Abdominal pain lower [Not Recovered/Not Resolved]
  - Alopecia [Unknown]
  - Malaise [Unknown]
  - Anaemia [Unknown]
  - Erythema [Recovered/Resolved]
  - Disease progression [Not Recovered/Not Resolved]

NARRATIVE: CASE EVENT DATE: 2019
